FAERS Safety Report 13047454 (Version 1)
Quarter: 2016Q4

REPORT INFORMATION
  Report Type: Report from Study
  Country: None (occurrence: US)
  Receive Date: 20161220
  Receipt Date: 20161220
  Transmission Date: 20170207
  Serious: Yes (Hospitalization)
  Sender: FDA-Public Use
  Company Number: US-ABBVIE-16K-163-1713813-00

PATIENT
  Sex: Female

DRUGS (1)
  1. HUMIRA [Suspect]
     Active Substance: ADALIMUMAB
     Indication: RHEUMATOID ARTHRITIS
     Route: 058
     Dates: start: 20160816

REACTIONS (17)
  - Joint swelling [Unknown]
  - Night sweats [Unknown]
  - Back pain [Not Recovered/Not Resolved]
  - Blood potassium abnormal [Unknown]
  - Gait disturbance [Unknown]
  - Joint stiffness [Unknown]
  - Sneezing [Unknown]
  - Arthralgia [Not Recovered/Not Resolved]
  - Psoriasis [Unknown]
  - Drug effect incomplete [Unknown]
  - Impaired self-care [Unknown]
  - Activities of daily living impaired [Unknown]
  - Arthralgia [Unknown]
  - Injection site bruising [Unknown]
  - Cough [Unknown]
  - Fatigue [Unknown]
  - Pain in extremity [Unknown]

NARRATIVE: CASE EVENT DATE: 2016
